FAERS Safety Report 10572582 (Version 2)
Quarter: 2015Q1

REPORT INFORMATION
  Report Type: Spontaneous
  Country: BE (occurrence: BE)
  Receive Date: 20141110
  Receipt Date: 20150106
  Transmission Date: 20150720
  Serious: Yes (Death)
  Sender: FDA-Public Use
  Company Number: BE-AMGEN-BELSP2014086060

PATIENT
  Age: 70 Year
  Sex: Male
  Weight: 113 kg

DRUGS (4)
  1. FOLINIC ACID [Concomitant]
     Active Substance: LEUCOVORIN
     Indication: COLON CANCER METASTATIC
     Dosage: UNK, /2 WEEK
     Route: 042
     Dates: start: 20140716, end: 20140924
  2. FLUOROURACIL. [Concomitant]
     Active Substance: FLUOROURACIL
     Indication: COLON CANCER METASTATIC
     Dosage: UNK UNK, /2 WEEK
     Route: 042
     Dates: start: 20140716, end: 20140924
  3. VECTIBIX [Suspect]
     Active Substance: PANITUMUMAB
     Indication: COLON CANCER METASTATIC
     Dosage: 678 MG (2 X), 1/2 WEEK
     Route: 042
     Dates: start: 20140813
  4. OXALIPLATIN. [Concomitant]
     Active Substance: OXALIPLATIN
     Indication: COLON CANCER METASTATIC
     Dosage: UNK, /2 WEEK
     Route: 042
     Dates: start: 20140716, end: 20140924

REACTIONS (2)
  - Pulmonary embolism [Fatal]
  - Skin toxicity [Unknown]

NARRATIVE: CASE EVENT DATE: 20141008
